FAERS Safety Report 7604750-5 (Version None)
Quarter: 2011Q3

REPORT INFORMATION
  Report Type: 
  Country: None (occurrence: None)
  Receive Date: 20110712
  Receipt Date: 20110704
  Transmission Date: 20111222
  Serious: Yes (Hospitalization)
  Sender: FDA-Public Use
  Company Number: PHHO2011JP11059

PATIENT
  Sex: Female
  Weight: 16.2 kg

DRUGS (4)
  1. METHOTREXATE [Suspect]
     Dosage: UNK
     Route: 048
     Dates: start: 20100218, end: 20100302
  2. ILARIS [Suspect]
     Indication: CHRONIC INFANTILE NEUROLOGICAL CUTANEOUS AND ARTICULAR SYNDROME
     Dosage: UNK
     Route: 058
     Dates: start: 20091215
  3. METHOTREXATE [Suspect]
     Indication: CHRONIC INFANTILE NEUROLOGICAL CUTANEOUS AND ARTICULAR SYNDROME
     Dosage: UNK
     Route: 048
     Dates: end: 20100129
  4. PREDNISOLONE [Suspect]
     Indication: CHRONIC INFANTILE NEUROLOGICAL CUTANEOUS AND ARTICULAR SYNDROME
     Dosage: 7 MG, UNK
     Route: 048
     Dates: start: 20100702

REACTIONS (2)
  - INFECTION SUSCEPTIBILITY INCREASED [None]
  - HERPES ZOSTER [None]
